FAERS Safety Report 8756780 (Version 2)
Quarter: 2012Q4

REPORT INFORMATION
  Report Type: 
  Country: US (occurrence: US)
  Receive Date: 20120821
  Receipt Date: 20120912
  Transmission Date: 20130627
  Serious: Yes (Death, Hospitalization)
  Sender: FDA-Public Use
  Company Number: US-ELI_LILLY_AND_COMPANY-US201208006382

PATIENT
  Age: 27 Year
  Sex: Male

DRUGS (1)
  1. ZYPREXA RELPREVV [Suspect]
     Indication: SCHIZOAFFECTIVE DISORDER
     Dosage: 300 mg, 2/M

REACTIONS (3)
  - Stab wound [Fatal]
  - Fall [Unknown]
  - Road traffic accident [Unknown]
